FAERS Safety Report 9190328 (Version 2)
Quarter: 2013Q3

REPORT INFORMATION
  Report Type: Spontaneous
  Country: US (occurrence: US)
  Receive Date: 20130326
  Receipt Date: 20130813
  Transmission Date: 20140515
  Serious: Yes (Death)
  Sender: FDA-Public Use
  Company Number: US-BAYER-2013-037221

PATIENT
  Age: 33 Year
  Sex: Female

DRUGS (10)
  1. YAZ [Suspect]
     Dosage: UNK
     Dates: start: 2005
  2. YASMIN [Suspect]
     Dosage: UNK
     Dates: start: 2005
  3. OCELLA [Suspect]
     Dosage: UNK
     Dates: start: 2005
  4. NIFEREX [Concomitant]
  5. FLEXERIL [Concomitant]
  6. KLONOPIN [Concomitant]
  7. CYCLOBENZAPRINE [Concomitant]
  8. MOBIC [Concomitant]
  9. CARDEC DM [Concomitant]
     Indication: COUGH
  10. HUMIBID [Concomitant]

REACTIONS (3)
  - Pulmonary embolism [Fatal]
  - Pain [None]
  - Pain [Fatal]
